FAERS Safety Report 22000998 (Version 1)
Quarter: 2023Q1

REPORT INFORMATION
  Report Type: Spontaneous
  Country: US (occurrence: None)
  Receive Date: 20230215
  Receipt Date: 20230215
  Transmission Date: 20230418
  Serious: No
  Sender: FDA-Public Use
  Company Number: None

PATIENT
  Age: 56 Year
  Sex: Male

DRUGS (4)
  1. CAPECITABINE [Suspect]
     Active Substance: CAPECITABINE
     Indication: Colorectal cancer
     Dosage: FREQUENCY : TWICE A DAY;?
     Route: 048
     Dates: start: 20220217
  2. VITAMIN B12 [Concomitant]
     Active Substance: CYANOCOBALAMIN
  3. VITAMINS [Concomitant]
     Active Substance: VITAMINS
  4. FISH OIL [Concomitant]
     Active Substance: FISH OIL

REACTIONS (5)
  - Paraesthesia [None]
  - Hypoaesthesia [None]
  - Hypoaesthesia [None]
  - Palmar-plantar erythrodysaesthesia syndrome [None]
  - Infusion related reaction [None]
